FAERS Safety Report 9562061 (Version 1)
Quarter: 2013Q3

REPORT INFORMATION
  Report Type: Spontaneous
  Country: US (occurrence: US)
  Receive Date: 20130927
  Receipt Date: 20130927
  Transmission Date: 20140515
  Serious: Yes (Life-Threatening)
  Sender: FDA-Public Use
  Company Number: US-ROXANE LABORATORIES, INC.-2013-RO-01570RO

PATIENT
  Age: 47 Year
  Sex: Female

DRUGS (5)
  1. ONDANSETRON [Suspect]
     Indication: ANTIEMETIC SUPPORTIVE CARE
  2. CITALOPRAM [Suspect]
     Dosage: 10 MG
  3. CLOZAPINE [Suspect]
     Dosage: 100 MG
  4. PROMETHAZINE HYDROCHLORIDE [Suspect]
     Indication: ANTIEMETIC SUPPORTIVE CARE
  5. METOCLOPRAMIDE HYDROCHLORIDE [Suspect]
     Indication: ANTIEMETIC SUPPORTIVE CARE

REACTIONS (1)
  - Serotonin syndrome [Recovered/Resolved]
